FAERS Safety Report 5941042-4 (Version None)
Quarter: 2008Q4

REPORT INFORMATION
  Report Type: 
  Country: None (occurrence: None)
  Receive Date: 20081104
  Receipt Date: 20081028
  Transmission Date: 20090506
  Serious: Yes (Hospitalization)
  Sender: FDA-Public Use
  Company Number: NL-B.I. PHARMACEUTICALS,INC./RIDGEFIELD-2008-NL-00702NL

PATIENT
  Sex: Male
  Weight: 75 kg

DRUGS (5)
  1. SPIRIVA [Suspect]
     Indication: CHRONIC OBSTRUCTIVE PULMONARY DISEASE
     Dosage: 18MCG
     Dates: start: 20071219
  2. SERETIDE DISKUS INHPDR [Concomitant]
     Dosage: STRENGTH IS 50/250MCG WITH 60 DOSES DISCUS. 2DD 2 PUFFS
     Dates: start: 20071219
  3. VENTOLIN DISKUS INHPDR [Concomitant]
     Dosage: 400MCG
     Dates: start: 20080409
  4. PREDNISOLON SANDOZ [Concomitant]
     Dosage: 5MG
     Dates: start: 20071219
  5. ALENDRONINEZUUR ACTAVIS [Concomitant]
     Dosage: 10MG
     Dates: start: 20080101

REACTIONS (1)
  - TRANSIENT ISCHAEMIC ATTACK [None]
